FAERS Safety Report 25082250 (Version 2)
Quarter: 2025Q1

REPORT INFORMATION
  Report Type: Spontaneous
  Country: TW (occurrence: TW)
  Receive Date: 20250317
  Receipt Date: 20250324
  Transmission Date: 20250408
  Serious: Yes (Other)
  Sender: AMGEN
  Company Number: TW-PFIZER INC-PV202500028592

PATIENT
  Age: 72 Year
  Sex: Female

DRUGS (2)
  1. ENBREL [Suspect]
     Active Substance: ETANERCEPT
     Indication: Rheumatoid arthritis
     Dosage: 25 MG, 2X/WEEK
     Route: 058
     Dates: start: 200906, end: 20250228
  2. ENBREL [Suspect]
     Active Substance: ETANERCEPT
     Dosage: 25 MG, 2X/WEEK (BIW)
     Route: 058
     Dates: start: 202503

REACTIONS (1)
  - Laryngeal mass [Recovered/Resolved]
